FAERS Safety Report 8568148 (Version 2)
Quarter: 2013Q1

REPORT INFORMATION
  Report Type: Spontaneous
  Country: DE (occurrence: DE)
  Receive Date: 20120518
  Receipt Date: 20130307
  Transmission Date: 20140127
  Serious: Yes (Other)
  Sender: FDA-Public Use
  Company Number: DE-JNJFOC-20120506289

PATIENT
  Sex: 0

DRUGS (9)
  1. DOXORUBICIN [Suspect]
     Indication: HODGKIN^S DISEASE
     Route: 042
  2. BLEOMYCIN [Suspect]
     Indication: HODGKIN^S DISEASE
     Route: 065
  3. ETOPOSIDE [Suspect]
     Indication: HODGKIN^S DISEASE
     Route: 065
  4. CYCLOPHOSPHAMIDE [Suspect]
     Indication: HODGKIN^S DISEASE
     Route: 065
  5. VINCRISTINE [Suspect]
     Indication: HODGKIN^S DISEASE
     Route: 065
  6. PROCARBAZINE [Suspect]
     Indication: HODGKIN^S DISEASE
     Route: 065
  7. PREDNISONE [Suspect]
     Indication: HODGKIN^S DISEASE
     Route: 065
  8. VINBLASTINE [Suspect]
     Indication: HODGKIN^S DISEASE
     Route: 065
  9. DACARBAZINE [Suspect]
     Indication: HODGKIN^S DISEASE
     Route: 065

REACTIONS (5)
  - Azoospermia [Unknown]
  - Amenorrhoea [Unknown]
  - Hypogonadism [Unknown]
  - Menopausal symptoms [Unknown]
  - Infertility [Unknown]
